FAERS Safety Report 7275271-7 (Version None)
Quarter: 2011Q1

REPORT INFORMATION
  Report Type: 
  Country: None (occurrence: None)
  Receive Date: 20110204
  Receipt Date: 20110131
  Transmission Date: 20110831
  Serious: Yes (Death, Hospitalization)
  Sender: FDA-Public Use
  Company Number: PHHY2010US77929

PATIENT
  Sex: Female
  Weight: 60 kg

DRUGS (10)
  1. ALLOPURINOL [Concomitant]
     Indication: GOUT
     Dosage: 100 MG DAILY
  2. ASPIRIN [Concomitant]
     Indication: CORONARY ARTERY DISEASE
     Dosage: 81 MG DAILY
  3. TOPROL-XL [Concomitant]
  4. VITAMIN D [Concomitant]
  5. SYNTHROID [Concomitant]
     Indication: HYPOTHYROIDISM
     Dosage: 175 MG DAILY
  6. EXJADE [Suspect]
     Indication: IRON OVERLOAD
     Dosage: 250 MG (04 PILLS AS DAY)
     Route: 048
     Dates: start: 20060418
  7. EXJADE [Suspect]
     Indication: MYELODYSPLASTIC SYNDROME
     Dosage: 1000 MG, QD
     Route: 048
     Dates: start: 20060401, end: 20100401
  8. VITAMIN B [Concomitant]
  9. VITAMIN E [Concomitant]
  10. ACTONEL [Concomitant]
     Indication: OSTEOPOROSIS
     Dosage: 35 MG WEEKLY

REACTIONS (3)
  - HEPATIC FAILURE [None]
  - SEPSIS [None]
  - RENAL FAILURE [None]
